FAERS Safety Report 4348407-5 (Version None)
Quarter: 2004Q1

REPORT INFORMATION
  Report Type: 
  Country: None (occurrence: None)
  Receive Date: 20040325
  Receipt Date: 20040115
  Transmission Date: 20041129
  Serious: No
  Sender: FDA-Public Use
  Company Number: USA031050671

PATIENT
  Age: 65 Year
  Sex: Female
  Weight: 84 kg

DRUGS (7)
  1. FORTEO [Suspect]
     Indication: OSTEOPOROSIS
     Dates: start: 20031001
  2. ATENOLOL [Concomitant]
  3. FOLIC ACID [Concomitant]
  4. PEPCID [Concomitant]
  5. ASPIRIN [Concomitant]
  6. ANTIBIOTIC [Concomitant]
  7. PLENDIL [Concomitant]

REACTIONS (7)
  - BLOOD PRESSURE INCREASED [None]
  - FEELING ABNORMAL [None]
  - INJECTION SITE ERYTHEMA [None]
  - INJECTION SITE HAEMORRHAGE [None]
  - MUSCLE SPASMS [None]
  - PYREXIA [None]
  - TACHYCARDIA [None]
